FAERS Safety Report 8816949 (Version 1)
Quarter: 2012Q4

REPORT INFORMATION
  Report Type: Spontaneous
  Country: US (occurrence: None)
  Receive Date: 20121003
  Receipt Date: 20121003
  Transmission Date: 20130627
  Serious: Yes (Hospitalization)
  Sender: FDA-Public Use
  Company Number: None

PATIENT
  Age: 73 Year
  Sex: Female
  Weight: 62.28 kg

DRUGS (2)
  1. BORTEZOMIB [Suspect]
     Indication: B-CELL LYMPHOMA RECURRENT
     Dosage: 2.7 mg D1, 8, 15, 22, of 35 d  IV Drip
     Route: 041
     Dates: start: 20120505, end: 20120816
  2. TEMSIROLIMUS 25 MG/ ML PFYZER [Suspect]
     Indication: B-CELL LYMPHOMA RECURRENT
     Dosage: 25 mg  D1,8,15,22 of 35 d  IV Drip
     Route: 041
     Dates: start: 20120505, end: 20120816

REACTIONS (12)
  - Diarrhoea [None]
  - Abdominal pain upper [None]
  - Abdominal distension [None]
  - Nausea [None]
  - Vomiting [None]
  - Decreased appetite [None]
  - Aphagia [None]
  - Dehydration [None]
  - Ileus [None]
  - Constipation [None]
  - Hyponatraemia [None]
  - Abdominal distension [None]
